FAERS Safety Report 5023894-8 (Version None)
Quarter: 2006Q2

REPORT INFORMATION
  Report Type: 
  Country: None (occurrence: None)
  Receive Date: 20060426
  Receipt Date: 20060220
  Transmission Date: 20061013
  Serious: Yes (Other)
  Sender: FDA-Public Use
  Company Number: 2006026172

PATIENT
  Age: 50 Year
  Sex: Male
  Weight: 77.1115 kg

DRUGS (11)
  1. LYRICA [Suspect]
     Indication: DIABETIC NEUROPATHY
     Dosage: 150 MG (50 MG,3 IN 1 D)
     Dates: start: 20060201
  2. NOVOLOG [Concomitant]
  3. LANTUS [Concomitant]
  4. RITALIN [Concomitant]
  5. PROZAC [Concomitant]
  6. ENALAPRIL MALEATE [Concomitant]
  7. TOPROL-XL [Concomitant]
  8. NIFEDIPINE [Concomitant]
  9. ACIPHEX [Concomitant]
  10. ZELNORM [Concomitant]
  11. LIPITOR [Concomitant]

REACTIONS (1)
  - DIZZINESS [None]
